FAERS Safety Report 4565535-X (Version None)
Quarter: 2005Q1

REPORT INFORMATION
  Report Type: 
  Country: None (occurrence: None)
  Receive Date: 20050126
  Receipt Date: 20050111
  Transmission Date: 20050727
  Serious: Yes (Hospitalization, Other)
  Sender: FDA-Public Use
  Company Number: USA020617319

PATIENT
  Age: 47 Year
  Sex: Female
  Weight: 101 kg

DRUGS (16)
  1. HUMALOG [Suspect]
     Indication: DIABETES MELLITUS
     Dosage: 10 U/3 DAY
     Dates: start: 20000101
  2. HUMULIN R [Suspect]
     Indication: DIABETES MELLITUS
     Dates: end: 20030301
  3. HUMULIN N [Suspect]
     Indication: DIABETES MELLITUS
     Dates: start: 19960101
  4. HUMATROPE [Suspect]
     Indication: BLOOD GROWTH HORMONE
     Dates: start: 19990101, end: 19990101
  5. INSULIN GLARGINE [Concomitant]
  6. GLUCOPAHTE (METFORMIN HYDROCHLORIDE) [Concomitant]
  7. ACTOS [Concomitant]
  8. TENORMIN 9ATENOLOL EG) [Concomitant]
  9. AVANDIA [Concomitant]
  10. ZYRTEC [Concomitant]
  11. VALIUM [Concomitant]
  12. IMDUR [Concomitant]
  13. NEURONTIN (GABAPENTIN PFIZER) [Concomitant]
  14. BACLOFEN [Concomitant]
  15. NORVASC [Concomitant]
  16. REGLAN [Concomitant]

REACTIONS (19)
  - BLOOD CHOLESTEROL INCREASED [None]
  - BLOOD GLUCOSE DECREASED [None]
  - BLOOD GLUCOSE FLUCTUATION [None]
  - BLOOD GLUCOSE INCREASED [None]
  - FATIGUE [None]
  - GASTRIC ULCER HAEMORRHAGE [None]
  - GASTROINTESTINAL DISORDER [None]
  - GROWTH HORMONE DEFICIENCY [None]
  - HAEMATEMESIS [None]
  - INSOMNIA [None]
  - INSULIN RESISTANCE [None]
  - MALAISE [None]
  - OEDEMA PERIPHERAL [None]
  - OESOPHAGEAL ULCER HAEMORRHAGE [None]
  - PSYCHOMOTOR HYPERACTIVITY [None]
  - SOMNOLENCE [None]
  - STRESS [None]
  - URINARY TRACT INFECTION [None]
  - WEIGHT INCREASED [None]
